FAERS Safety Report 4378031-X (Version None)
Quarter: 2004Q2

REPORT INFORMATION
  Report Type: 
  Country: None (occurrence: None)
  Receive Date: 20040608
  Receipt Date: 20040527
  Transmission Date: 20050107
  Serious: Yes (Hospitalization)
  Sender: FDA-Public Use
  Company Number: 04P-062-0262382-00

PATIENT
  Sex: Female
  Weight: 95 kg

DRUGS (4)
  1. HUMIRA [Suspect]
     Indication: RHEUMATOID ARTHRITIS
     Dosage: 40 MG, 1 IN 2 WK, SUBCUTANEOUS
     Route: 058
     Dates: start: 20040224
  2. BUCINDOLOL HYDROCHLORIDE [Concomitant]
  3. FELODIPINE [Concomitant]
  4. CANDESARTAN CILEXETIL [Concomitant]

REACTIONS (2)
  - ACUTE CORONARY SYNDROME [None]
  - LEFT VENTRICULAR FAILURE [None]
